FAERS Safety Report 14396633 (Version 1)
Quarter: 2018Q1

REPORT INFORMATION
  Report Type: Spontaneous
  Country: US (occurrence: US)
  Receive Date: 20180116
  Receipt Date: 20180116
  Transmission Date: 20180509
  Serious: No
  Sender: FDA-Public Use
  Company Number: US-ALLERGAN-1758633US

PATIENT
  Sex: Female

DRUGS (2)
  1. BOTOX [Suspect]
     Active Substance: ONABOTULINUMTOXINA
     Indication: OROMANDIBULAR DYSTONIA
  2. BOTOX [Suspect]
     Active Substance: ONABOTULINUMTOXINA
     Indication: TEMPOROMANDIBULAR JOINT SYNDROME
     Dosage: 25 UNITS, SINGLE
     Route: 030
     Dates: start: 20170828, end: 20170828

REACTIONS (4)
  - Flatulence [Unknown]
  - Off label use [Unknown]
  - Abdominal pain upper [Unknown]
  - Abdominal distension [Unknown]

NARRATIVE: CASE EVENT DATE: 20170828
